FAERS Safety Report 7549147-1 (Version None)
Quarter: 2011Q2

REPORT INFORMATION
  Report Type: 
  Country: None (occurrence: None)
  Receive Date: 20110525
  Receipt Date: 20110207
  Transmission Date: 20111010
  Serious: No
  Sender: FDA-Public Use
  Company Number: 323013

PATIENT
  Age: 50 Year
  Sex: Female
  Weight: 89.2 kg

DRUGS (5)
  1. ALLEGRA [Concomitant]
  2. CALCIUM +VIT D (CALCIUM, COLECALCIFEROL) [Concomitant]
  3. SIMVASTATIN [Concomitant]
  4. RANITIDINE [Concomitant]
  5. VICTOZA [Suspect]
     Indication: TYPE 2 DIABETES MELLITUS
     Dosage: 1.8 MG DAILY, SUBCUTANEOUS
     Route: 058
     Dates: start: 20100430, end: 20100917

REACTIONS (2)
  - ALANINE AMINOTRANSFERASE INCREASED [None]
  - ASPARTATE AMINOTRANSFERASE INCREASED [None]
